FAERS Safety Report 24034921 (Version 3)
Quarter: 2024Q4

REPORT INFORMATION
  Report Type: Report from Study
  Country: CA (occurrence: CA)
  Receive Date: 20240701
  Receipt Date: 20241215
  Transmission Date: 20250114
  Serious: Yes (Other)
  Sender: BIOGEN
  Company Number: CA-BIOGEN-2024BI01271254

PATIENT
  Age: 19 Year
  Sex: Female

DRUGS (2)
  1. TYSABRI [Suspect]
     Active Substance: NATALIZUMAB
     Indication: Multiple sclerosis
     Route: 050
     Dates: start: 20210423
  2. TYSABRI [Suspect]
     Active Substance: NATALIZUMAB
     Route: 050
     Dates: start: 20210423

REACTIONS (6)
  - Blindness unilateral [Unknown]
  - Diplopia [Unknown]
  - Photophobia [Unknown]
  - Visual impairment [Unknown]
  - Visual field defect [Unknown]
  - Optic neuritis [Unknown]

NARRATIVE: CASE EVENT DATE: 20240601
